FAERS Safety Report 23841822 (Version 1)
Quarter: 2024Q2

REPORT INFORMATION
  Report Type: Report from Study
  Country: US (occurrence: US)
  Receive Date: 20240510
  Receipt Date: 20240510
  Transmission Date: 20240716
  Serious: Yes (Other)
  Sender: FDA-Public Use
  Company Number: US-ABBVIE-5473573

PATIENT
  Age: 64 Year
  Sex: Male

DRUGS (2)
  1. RINVOQ [Suspect]
     Active Substance: UPADACITINIB
     Indication: Colitis ulcerative
     Dosage: FORM STRENGTH: 30 MILLIGRAM
     Route: 048
  2. RINVOQ [Suspect]
     Active Substance: UPADACITINIB
     Indication: Colitis ulcerative
     Dosage: FORM STRENGTH: 45 MILLIGRAM?FOR 8 WEEKS
     Route: 048
     Dates: start: 20230925

REACTIONS (8)
  - Tooth abscess [Unknown]
  - Diarrhoea [Unknown]
  - Fatigue [Unknown]
  - Arthralgia [Unknown]
  - Tooth abscess [Recovered/Resolved]
  - Abdominal pain [Unknown]
  - Nausea [Unknown]
  - Asthenia [Unknown]

NARRATIVE: CASE EVENT DATE: 20231001
